FAERS Safety Report 4732623-4 (Version None)
Quarter: 2005Q3

REPORT INFORMATION
  Report Type: 
  Country: None (occurrence: None)
  Receive Date: 20050801
  Receipt Date: 20050725
  Transmission Date: 20060218
  Serious: Yes (Hospitalization, Disabling, Other)
  Sender: FDA-Public Use
  Company Number: 2005106359

PATIENT
  Age: 55 Year
  Sex: Male
  Weight: 97.5234 kg

DRUGS (4)
  1. LIPITOR [Suspect]
     Indication: BLOOD CHOLESTEROL INCREASED
     Dates: start: 20010101
  2. CHOLESTEROL- AND TRIGLYCERIDE REDUCERS (CHOLESTEROL- AND TRIGLYCERIDE [Suspect]
     Indication: BLOOD CHOLESTEROL INCREASED
     Dates: end: 20040101
  3. TOPROL-XL [Concomitant]
  4. LISINOPRIL [Concomitant]

REACTIONS (9)
  - AMNESIA [None]
  - ARTHRALGIA [None]
  - BALANCE DISORDER [None]
  - CEREBROVASCULAR ACCIDENT [None]
  - DRUG INEFFECTIVE [None]
  - IMMOBILE [None]
  - IMPAIRED WORK ABILITY [None]
  - MYOCARDIAL INFARCTION [None]
  - VISUAL ACUITY REDUCED [None]
